FAERS Safety Report 4872152-0 (Version None)
Quarter: 2005Q4

REPORT INFORMATION
  Report Type: 
  Country: None (occurrence: None)
  Receive Date: 20051230
  Receipt Date: 20051216
  Transmission Date: 20060501
  Serious: Yes (Other)
  Sender: FDA-Public Use
  Company Number: US-2005-026072

PATIENT
  Age: 35 Year
  Sex: Female

DRUGS (1)
  1. BETASERON [Suspect]
     Indication: RELAPSING-REMITTING MULTIPLE SCLEROSIS
     Dosage: 8 MIU, EVERY 2D, SUBCUTANEOUS
     Route: 058
     Dates: start: 20041222

REACTIONS (5)
  - DIAPHRAGMATIC HERNIA [None]
  - HAEMANGIOMA OF LIVER [None]
  - HERPES SIMPLEX [None]
  - TRIGEMINAL NERVE DISORDER [None]
  - WEIGHT DECREASED [None]
